FAERS Safety Report 22954138 (Version 2)
Quarter: 2023Q4

REPORT INFORMATION
  Report Type: Report from Study
  Country: US (occurrence: US)
  Receive Date: 20230918
  Receipt Date: 20231117
  Transmission Date: 20240110
  Serious: Yes (Other)
  Sender: FDA-Public Use
  Company Number: US-ARGENX-2022-ARGX-US001546

PATIENT

DRUGS (5)
  1. VYVGART [Suspect]
     Active Substance: EFGARTIGIMOD ALFA-FCAB
     Indication: Myasthenia gravis
     Dosage: 10 MG/KG
     Route: 042
     Dates: start: 20220811
  2. VYVGART [Suspect]
     Active Substance: EFGARTIGIMOD ALFA-FCAB
     Dosage: 10 MG/KG
     Route: 042
     Dates: start: 20221118
  3. VYVGART [Suspect]
     Active Substance: EFGARTIGIMOD ALFA-FCAB
     Dosage: 10 MG/KG
     Route: 042
     Dates: start: 20230504
  4. VYVGART [Suspect]
     Active Substance: EFGARTIGIMOD ALFA-FCAB
     Dosage: 10 MG/KG
     Route: 042
     Dates: start: 20230908
  5. TYLENOL [Concomitant]
     Active Substance: ACETAMINOPHEN
     Indication: Procedural headache
     Dosage: UNK
     Route: 065

REACTIONS (13)
  - Syncope [Unknown]
  - Lethargy [Unknown]
  - Fatigue [Unknown]
  - Headache [Unknown]
  - Procedural headache [Unknown]
  - Heart rate increased [Unknown]
  - Fall [Unknown]
  - Heart rate increased [Unknown]
  - Sinus congestion [Unknown]
  - Respiratory tract congestion [Unknown]
  - Cough [Unknown]
  - Dyspnoea [Unknown]
  - Nausea [Unknown]

NARRATIVE: CASE EVENT DATE: 20220816
